FAERS Safety Report 19100358 (Version 3)
Quarter: 2021Q3

REPORT INFORMATION
  Report Type: Report from Study
  Country: BR (occurrence: BR)
  Receive Date: 20210407
  Receipt Date: 20210922
  Transmission Date: 20211014
  Serious: Yes (Death, Hospitalization, Other)
  Sender: FDA-Public Use
  Company Number: BR-JNJFOC-20210404301

PATIENT
  Age: 69 Year
  Sex: Female
  Weight: 55 kg

DRUGS (1)
  1. SIMPONI [Suspect]
     Active Substance: GOLIMUMAB
     Indication: RHEUMATOID ARTHRITIS
     Route: 058
     Dates: start: 20210122, end: 20210316

REACTIONS (5)
  - Renal failure [Unknown]
  - Respiratory failure [Unknown]
  - Sepsis [Fatal]
  - COVID-19 [Fatal]
  - Spinal cord neoplasm [Unknown]

NARRATIVE: CASE EVENT DATE: 20210316
